FAERS Safety Report 7562893-9 (Version None)
Quarter: 2011Q2

REPORT INFORMATION
  Report Type: 
  Country: None (occurrence: None)
  Receive Date: 20110615
  Receipt Date: 20110608
  Transmission Date: 20111010
  Serious: Yes (Death, Hospitalization)
  Sender: FDA-Public Use
  Company Number: KV201000364

PATIENT
  Age: 65 Year
  Sex: Male
  Weight: 84.8 kg

DRUGS (31)
  1. AMOXICILLIN [Concomitant]
  2. BISACODYL (BISACODYL) [Concomitant]
  3. COLCHICINE [Concomitant]
  4. GUAIFENESIN [Concomitant]
  5. OXYCODONE HCL [Concomitant]
  6. CARBIDOPA/LEVODOPA (CARBIDOPA, LEVODOPA) [Concomitant]
  7. ALLOPURINOL [Concomitant]
  8. DOXEPIN HYDROCHLORIDE [Concomitant]
  9. DIVALPROEX (VALPROATE SEMISODIUM) [Concomitant]
  10. TRAZODONE HCL [Concomitant]
  11. AMITRIPTYLINE HCL [Concomitant]
  12. FLUNISOLIDE (FLUNISOLIDE) [Concomitant]
  13. LEVOTHYROXINE SODIUM [Concomitant]
  14. ROPINIROLE [Concomitant]
  15. RABEPRAZOLE (RABEPRAZOLE) [Concomitant]
  16. OMEPRAZOLE [Concomitant]
  17. BUSPIRONE HYDROCHLORIDE [Suspect]
     Indication: POST-TRAUMATIC STRESS DISORDER
     Dosage: 5 MG, BID, ORAL ; 10 MG, TID, ORAL
     Route: 048
     Dates: start: 20040512, end: 20081208
  18. BUSPIRONE HYDROCHLORIDE [Suspect]
     Indication: ANXIETY
     Dosage: 5 MG, BID, ORAL ; 10 MG, TID, ORAL
     Route: 048
     Dates: start: 20040512, end: 20081208
  19. BUSPIRONE HYDROCHLORIDE [Suspect]
     Indication: POST-TRAUMATIC STRESS DISORDER
     Dosage: 5 MG, BID, ORAL ; 10 MG, TID, ORAL
     Route: 048
     Dates: start: 20040330, end: 20040512
  20. BUSPIRONE HYDROCHLORIDE [Suspect]
     Indication: ANXIETY
     Dosage: 5 MG, BID, ORAL ; 10 MG, TID, ORAL
     Route: 048
     Dates: start: 20040330, end: 20040512
  21. FISH OIL (FISH OIL) [Concomitant]
  22. FLUOXETINE [Concomitant]
  23. FLUTICASONE PROPIONATE [Concomitant]
  24. KETOTIFEN (KETOTIFEN) [Concomitant]
  25. ASPIRIN [Concomitant]
  26. DOCUSATE SODIUM (DOCUSATE SODIUM) [Concomitant]
  27. METHOCARBAMOL [Concomitant]
  28. TEMAZEPAM [Concomitant]
  29. MAGNESIUM HYDROXIDE TAB [Concomitant]
  30. CEFAZOLIN [Concomitant]
  31. EZETIMIBE [Concomitant]

REACTIONS (32)
  - ABDOMINAL DISTENSION [None]
  - VASOCONSTRICTION [None]
  - FACIAL BONES FRACTURE [None]
  - HEPATIC CONGESTION [None]
  - HYPOTHYROIDISM [None]
  - GENERAL PHYSICAL HEALTH DETERIORATION [None]
  - VISION BLURRED [None]
  - PERIPHERAL COLDNESS [None]
  - PANIC ATTACK [None]
  - HYPERTENSION [None]
  - FALL [None]
  - SINUS HEADACHE [None]
  - LACERATION [None]
  - VASOMOTOR RHINITIS [None]
  - FATIGUE [None]
  - CARDIAC FAILURE CONGESTIVE [None]
  - ANXIETY [None]
  - PYREXIA [None]
  - SOMNOLENCE [None]
  - POST-TRAUMATIC STRESS DISORDER [None]
  - RENAL FAILURE [None]
  - OVERDOSE [None]
  - JAUNDICE [None]
  - HYPONATRAEMIA [None]
  - LOSS OF CONSCIOUSNESS [None]
  - CORONARY ARTERY DISEASE [None]
  - SYNCOPE [None]
  - CONGESTIVE CARDIOMYOPATHY [None]
  - DIZZINESS [None]
  - RHINALGIA [None]
  - EPISTAXIS [None]
  - CLAVICLE FRACTURE [None]
